FAERS Safety Report 20737215 (Version 2)
Quarter: 2022Q2

REPORT INFORMATION
  Report Type: Spontaneous
  Country: US (occurrence: US)
  Receive Date: 20220421
  Receipt Date: 20220502
  Transmission Date: 20220721
  Serious: Yes (Death, Hospitalization)
  Sender: FDA-Public Use
  Company Number: US-TEVA-2022-US-2028375

PATIENT
  Age: 66 Year
  Sex: Male

DRUGS (3)
  1. DEXAMETHASONE [Suspect]
     Active Substance: DEXAMETHASONE
     Indication: COVID-19
     Route: 065
  2. REMDESIVIR [Suspect]
     Active Substance: REMDESIVIR
     Indication: COVID-19
     Route: 065
  3. TOCILIZUMAB [Suspect]
     Active Substance: TOCILIZUMAB
     Indication: COVID-19
     Route: 065

REACTIONS (13)
  - Pneumonia aspiration [Fatal]
  - Endocarditis [Unknown]
  - Staphylococcal bacteraemia [Unknown]
  - Cardiac valve vegetation [Unknown]
  - Embolic stroke [Unknown]
  - Septic embolus [Unknown]
  - Haemorrhagic transformation stroke [Unknown]
  - Nervous system disorder [Unknown]
  - Pulmonary infarction [Unknown]
  - Renal infarct [Unknown]
  - Splenic infarction [Unknown]
  - Drug ineffective [Unknown]
  - Off label use [Unknown]
